FAERS Safety Report 23483031 (Version 1)
Quarter: 2024Q1

REPORT INFORMATION
  Report Type: Spontaneous
  Country: US (occurrence: US)
  Receive Date: 20240205
  Receipt Date: 20240205
  Transmission Date: 20240410
  Serious: Yes (Hospitalization)
  Sender: FDA-Public Use
  Company Number: US-PFIZER INC-202400032377

PATIENT
  Age: 58 Year
  Sex: Female

DRUGS (2)
  1. IBRANCE [Suspect]
     Active Substance: PALBOCICLIB
     Dosage: DAILY FOR 21 DAYS WITH 7 DAYS OFF FOR A 28 DAY CYCLE
     Route: 048
     Dates: start: 202008
  2. IBRANCE [Suspect]
     Active Substance: PALBOCICLIB
     Dosage: DAILY FOR 21 DAYS WITH 7 DAYS OFF FOR A 28 DAY CYCLE
     Route: 048

REACTIONS (4)
  - Pneumonia [Recovering/Resolving]
  - Stomatitis [Recovering/Resolving]
  - Fatigue [Recovering/Resolving]
  - Full blood count decreased [Recovering/Resolving]
